FAERS Safety Report 11688110 (Version 1)
Quarter: 2015Q4

REPORT INFORMATION
  Report Type: Spontaneous
  Country: CA (occurrence: CA)
  Receive Date: 20151030
  Receipt Date: 20151030
  Transmission Date: 20160304
  Serious: Yes (Other)
  Sender: FDA-Public Use
  Company Number: CA-ROCHE-1649302

PATIENT
  Age: 54 Year
  Sex: Female

DRUGS (7)
  1. TYLENOL #1 (CANADA) [Concomitant]
     Active Substance: ACETAMINOPHEN\CAFFEINE\CODEINE PHOSPHATE
  2. TAXOTERE [Suspect]
     Active Substance: DOCETAXEL
     Indication: BREAST CANCER METASTATIC
     Dosage: THERAPY DURATION: 4 MONTHS
     Route: 042
  3. OXYCODONE [Concomitant]
     Active Substance: OXYCODONE
  4. HERCEPTIN [Suspect]
     Active Substance: TRASTUZUMAB
     Indication: BREAST CANCER METASTATIC
     Route: 042
  5. LOSEC [Concomitant]
     Active Substance: OMEPRAZOLE
  6. PERJETA [Suspect]
     Active Substance: PERTUZUMAB
     Indication: BREAST CANCER METASTATIC
     Route: 042
  7. PERJETA [Suspect]
     Active Substance: PERTUZUMAB
     Route: 042

REACTIONS (5)
  - Pruritus [Unknown]
  - Hip fracture [Unknown]
  - Fall [Unknown]
  - Burning sensation [Unknown]
  - Rash macular [Unknown]
